FAERS Safety Report 5443733-0 (Version None)
Quarter: 2007Q3

REPORT INFORMATION
  Report Type: 
  Country: None (occurrence: None)
  Receive Date: 20070905
  Receipt Date: 20070824
  Transmission Date: 20080115
  Serious: Yes (Hospitalization)
  Sender: FDA-Public Use
  Company Number: PL-PFIZER INC-2007070274

PATIENT
  Sex: Male

DRUGS (2)
  1. CLINDAMYCIN HCL [Suspect]
  2. OLFEN [Concomitant]

REACTIONS (2)
  - DYSPNOEA [None]
  - URTICARIA [None]
